FAERS Safety Report 25426509 (Version 1)
Quarter: 2025Q2

REPORT INFORMATION
  Report Type: Spontaneous
  Country: FR (occurrence: FR)
  Receive Date: 20250612
  Receipt Date: 20250612
  Transmission Date: 20250716
  Serious: Yes (Hospitalization, Other)
  Sender: RANBAXY
  Company Number: FR-AFSSAPS-MP2025000285

PATIENT
  Age: 84 Year
  Sex: Male
  Weight: 73.1 kg

DRUGS (3)
  1. CIPROFLOXACIN [Suspect]
     Active Substance: CIPROFLOXACIN
     Indication: Bacterial prostatitis
     Dosage: 500 MILLIGRAM, BID
     Route: 048
     Dates: start: 20250206, end: 20250224
  2. LINEZOLID [Suspect]
     Active Substance: LINEZOLID
     Indication: Bacterial prostatitis
     Dosage: 600 MILLIGRAM, BID
     Route: 040
     Dates: start: 20250202, end: 20250218
  3. MEROPENEM [Concomitant]
     Active Substance: MEROPENEM
     Indication: Bacterial prostatitis
     Dosage: 1000 MILLIGRAM, TID
     Route: 040
     Dates: start: 20250202, end: 20250205

REACTIONS (4)
  - Bicytopenia [Recovered/Resolved]
  - Thrombocytopenia [Recovered/Resolved]
  - Anaemia [Not Recovered/Not Resolved]
  - Confusional state [Recovered/Resolved]

NARRATIVE: CASE EVENT DATE: 20250219
